FAERS Safety Report 19135678 (Version 2)
Quarter: 2021Q2

REPORT INFORMATION
  Report Type: Spontaneous
  Country: TH (occurrence: TH)
  Receive Date: 20210414
  Receipt Date: 20210503
  Transmission Date: 20210717
  Serious: Yes (Other)
  Sender: FDA-Public Use
  Company Number: TH-IGSA-BIG0013524

PATIENT
  Age: 34 Year
  Sex: Female
  Weight: 48 kg

DRUGS (12)
  1. ALBUTEIN [Suspect]
     Active Substance: ALBUMIN HUMAN
     Indication: PLASMAPHERESIS
     Dosage: 60 GRAM, QD
     Route: 042
     Dates: start: 20210201, end: 20210201
  2. ALBUTEIN [Suspect]
     Active Substance: ALBUMIN HUMAN
     Dosage: 60 GRAM, QD
     Route: 042
     Dates: start: 20210203, end: 20210203
  3. ATORVASTATIN [Concomitant]
     Active Substance: ATORVASTATIN
     Indication: BLOOD CHOLESTEROL
     Dosage: 10 MILLIGRAM
     Route: 048
     Dates: start: 202101
  4. SODIUM CHLORIDE. [Concomitant]
     Active Substance: SODIUM CHLORIDE
  5. NEORAL [Concomitant]
     Active Substance: CYCLOSPORINE
     Indication: RENAL TRANSPLANT
     Dosage: 250 MILLIGRAM
     Route: 048
     Dates: start: 202012
  6. DILTIAZEM. [Concomitant]
     Active Substance: DILTIAZEM
     Dosage: 120 MILLIGRAM
     Route: 048
     Dates: start: 202007
  7. CALCIUM CARBONATE. [Concomitant]
     Active Substance: CALCIUM CARBONATE
     Dosage: UNK
     Dates: start: 202007
  8. DOXEPIN [Concomitant]
     Active Substance: DOXEPIN
     Dosage: UNK
     Dates: start: 202007
  9. PREDNISOLONE. [Concomitant]
     Active Substance: PREDNISOLONE
     Indication: RENAL TRANSPLANT
     Dosage: 5 MILLIGRAM
     Route: 048
     Dates: start: 202007
  10. SODAMINT [SODIUM BICARBONATE] [Concomitant]
     Dosage: UNK
     Dates: start: 202007
  11. IMMUCEPT [Concomitant]
     Indication: RENAL TRANSPLANT
     Dosage: 1 GRAM
     Route: 048
     Dates: start: 202007
  12. VITAMIN D2 [Concomitant]
     Active Substance: ERGOCALCIFEROL
     Dosage: 20000 UNK
     Dates: start: 202007

REACTIONS (7)
  - Tachycardia [Recovered/Resolved]
  - Chills [Recovered/Resolved]
  - Urticaria [Recovered/Resolved]
  - Syncope [Recovered/Resolved]
  - Angioedema [Recovered/Resolved]
  - Rash [Recovered/Resolved]
  - Nausea [Recovered/Resolved]

NARRATIVE: CASE EVENT DATE: 20210202
